FAERS Safety Report 6087031-3 (Version None)
Quarter: 2009Q1

REPORT INFORMATION
  Report Type: 
  Country: None (occurrence: None)
  Receive Date: 20090223
  Receipt Date: 20090210
  Transmission Date: 20090719
  Serious: Yes (Other)
  Sender: FDA-Public Use
  Company Number: PHHY2008DE33480

PATIENT
  Sex: Male
  Weight: 100 kg

DRUGS (3)
  1. RASILEZ [Suspect]
     Indication: HYPERTENSION
     Dosage: 300 MG DAILY
     Dates: start: 20080621, end: 20081023
  2. DIOVAN HCT [Concomitant]
     Dosage: 1 DF, QD
     Dates: start: 20060101
  3. CONCOR [Concomitant]
     Indication: HYPERTENSION
     Dosage: 1 DF, QD
     Dates: start: 20050101

REACTIONS (4)
  - DERMATITIS [None]
  - DERMATITIS ALLERGIC [None]
  - ERYTHEMA [None]
  - PRURITUS [None]
